FAERS Safety Report 8368857-X (Version None)
Quarter: 2012Q2

REPORT INFORMATION
  Report Type: 
  Country: None (occurrence: None)
  Receive Date: 20120516
  Receipt Date: 20120506
  Transmission Date: 20120825
  Serious: Yes (Life-Threatening, Hospitalization, Other)
  Sender: FDA-Public Use
  Company Number: ADR-2012-00161

PATIENT
  Sex: Male

DRUGS (2)
  1. BACLOFEN [Suspect]
     Indication: MUSCLE SPASTICITY
  2. BACLOFEN [Suspect]
     Indication: MULTIPLE SCLEROSIS

REACTIONS (4)
  - STRESS [None]
  - SKIN DISORDER [None]
  - CARDIAC ARREST [None]
  - INFECTION [None]
